FAERS Safety Report 12536523 (Version 4)
Quarter: 2016Q3

REPORT INFORMATION
  Report Type: Spontaneous
  Country: US (occurrence: US)
  Receive Date: 20160707
  Receipt Date: 20160905
  Transmission Date: 20161109
  Serious: No
  Sender: FDA-Public Use
  Company Number: US-PFIZER INC-2016319879

PATIENT
  Age: 57 Year
  Sex: Female
  Weight: 57 kg

DRUGS (2)
  1. ADVIL PM [Suspect]
     Active Substance: DIPHENHYDRAMINE CITRATE\IBUPROFEN
     Indication: INSOMNIA
  2. ADVIL PM [Suspect]
     Active Substance: DIPHENHYDRAMINE CITRATE\IBUPROFEN
     Indication: INITIAL INSOMNIA
     Dosage: 2 DF, 1X/DAY AT NIGHT
     Route: 048
     Dates: start: 20160627, end: 20160627

REACTIONS (6)
  - Discomfort [Recovered/Resolved]
  - Tremor [Recovered/Resolved]
  - Obsessive-compulsive disorder [Recovered/Resolved]
  - Drug ineffective [Recovered/Resolved]
  - Muscle twitching [Recovered/Resolved]
  - Restlessness [Recovered/Resolved]

NARRATIVE: CASE EVENT DATE: 2016
